FAERS Safety Report 10742283 (Version 1)
Quarter: 2015Q1

REPORT INFORMATION
  Report Type: Spontaneous
  Country: US (occurrence: None)
  Receive Date: 20150123
  Receipt Date: 20150123
  Transmission Date: 20150721
  Serious: Yes (Life-Threatening, Disabling)
  Sender: FDA-Public Use
  Company Number: None

PATIENT
  Age: 62 Year
  Sex: Female
  Weight: 45.81 kg

DRUGS (8)
  1. MULTIVITAMINS B, D [Concomitant]
  2. PROTEIN SHAKES [Concomitant]
  3. METAMUCIL [Concomitant]
     Active Substance: PLANTAGO SEED
  4. RELYTE ELECTROLYTE REPLENISHMENT + EMERGEN C [Concomitant]
  5. XANAX [Concomitant]
     Active Substance: ALPRAZOLAM
  6. CALCIUM  E [Concomitant]
  7. KENALOG [Suspect]
     Active Substance: TRIAMCINOLONE ACETONIDE
     Indication: RASH
     Dates: start: 20140910, end: 20141010
  8. NEXIUM [Concomitant]
     Active Substance: ESOMEPRAZOLE MAGNESIUM

REACTIONS (14)
  - Muscle spasms [None]
  - Vertigo [None]
  - Hypoaesthesia [None]
  - Hypertension [None]
  - Haemorrhage [None]
  - Impaired healing [None]
  - Hair growth abnormal [None]
  - Heart rate increased [None]
  - Headache [None]
  - Skin discolouration [None]
  - Paraesthesia [None]
  - Pigmentation disorder [None]
  - Adrenal insufficiency [None]
  - Contusion [None]

NARRATIVE: CASE EVENT DATE: 20141010
